FAERS Safety Report 11094527 (Version 2)
Quarter: 2015Q4

REPORT INFORMATION
  Report Type: Spontaneous
  Country: US (occurrence: US)
  Receive Date: 20150506
  Receipt Date: 20151105
  Transmission Date: 20160304
  Serious: No
  Sender: FDA-Public Use
  Company Number: US-ANACOR-2015ANA00009

PATIENT
  Sex: Female
  Weight: 57.6 kg

DRUGS (2)
  1. KERYDIN [Suspect]
     Active Substance: TAVABOROLE
     Dosage: 1 GTT, 1X/DAY
     Route: 061
     Dates: start: 201502, end: 201502
  2. KERYDIN [Suspect]
     Active Substance: TAVABOROLE
     Indication: ONYCHOMYCOSIS
     Dosage: 1 DOSAGE UNITS, 1X/DAY
     Route: 061
     Dates: start: 201502, end: 201502

REACTIONS (12)
  - Peripheral swelling [Not Recovered/Not Resolved]
  - Localised infection [Recovering/Resolving]
  - Localised infection [None]
  - Pyrexia [Recovering/Resolving]
  - Wound [Not Recovered/Not Resolved]
  - Pain in extremity [Not Recovered/Not Resolved]
  - Purulent discharge [Not Recovered/Not Resolved]
  - Application site erythema [Recovering/Resolving]
  - Application site warmth [Recovering/Resolving]
  - Mobility decreased [Recovering/Resolving]
  - Onycholysis [Not Recovered/Not Resolved]
  - Diarrhoea [None]

NARRATIVE: CASE EVENT DATE: 2015
